FAERS Safety Report 5958157-7 (Version None)
Quarter: 2008Q4

REPORT INFORMATION
  Report Type: 
  Country: None (occurrence: None)
  Receive Date: 20081117
  Receipt Date: 20081117
  Transmission Date: 20090506
  Serious: Yes (Hospitalization)
  Sender: FDA-Public Use
  Company Number: None

PATIENT
  Age: 30 Year
  Sex: Female
  Weight: 49.8957 kg

DRUGS (5)
  1. YASMIN [Suspect]
     Indication: ADVERSE REACTION
     Dosage: 30 MCG  ONCE A DAY PO
     Route: 048
     Dates: start: 20070927, end: 20080927
  2. YASMIN [Suspect]
     Indication: ANXIETY
     Dosage: 30 MCG  ONCE A DAY PO
     Route: 048
     Dates: start: 20070927, end: 20080927
  3. YASMIN [Suspect]
     Indication: DEPRESSION
     Dosage: 30 MCG  ONCE A DAY PO
     Route: 048
     Dates: start: 20070927, end: 20080927
  4. YASMIN [Suspect]
     Indication: PALPITATIONS
     Dosage: 30 MCG  ONCE A DAY PO
     Route: 048
     Dates: start: 20070927, end: 20080927
  5. YASMIN [Suspect]
     Indication: TACHYCARDIA
     Dosage: 30 MCG  ONCE A DAY PO
     Route: 048
     Dates: start: 20070927, end: 20080927

REACTIONS (6)
  - ANXIETY [None]
  - DEPRESSION [None]
  - ILL-DEFINED DISORDER [None]
  - INSOMNIA [None]
  - MENTAL DISORDER [None]
  - PALPITATIONS [None]
